FAERS Safety Report 15813800 (Version 1)
Quarter: 2019Q1

REPORT INFORMATION
  Report Type: Spontaneous
  Country: CN (occurrence: CN)
  Receive Date: 20190111
  Receipt Date: 20190111
  Transmission Date: 20190417
  Serious: Yes (Other)
  Sender: FDA-Public Use
  Company Number: CN-ASTELLAS-2019US001299

PATIENT
  Age: 62 Year
  Sex: Male

DRUGS (5)
  1. CISPLATIN. [Concomitant]
     Active Substance: CISPLATIN
     Indication: LUNG ADENOCARCINOMA
     Dosage: UNK, UNKNOWN FREQ.
     Route: 065
     Dates: start: 201107, end: 201110
  2. BEVACIZUMAB. [Suspect]
     Active Substance: BEVACIZUMAB
     Indication: NON-SMALL CELL LUNG CANCER STAGE II
     Dosage: 959.46 MG/KG, UNKNOWN FREQ (TOTAL 71000MG)
     Route: 065
     Dates: start: 200801, end: 201705
  3. GEMCITABINE [Concomitant]
     Active Substance: GEMCITABINE\GEMCITABINE HYDROCHLORIDE
     Indication: PRODUCT USED FOR UNKNOWN INDICATION
     Dosage: UNK, UNKNOWN FREQ.
     Route: 065
  4. PACLITAXEL. [Concomitant]
     Active Substance: PACLITAXEL
     Indication: LUNG ADENOCARCINOMA
     Dosage: UNK, UNKNOWN FREQ.
     Route: 065
     Dates: start: 201107, end: 201110
  5. ERLOTINIB [Suspect]
     Active Substance: ERLOTINIB
     Indication: NON-SMALL CELL LUNG CANCER STAGE II
     Dosage: UNK UNK, UNKNOWN FREQ.
     Route: 065
     Dates: start: 201510, end: 201711

REACTIONS (4)
  - Proteinuria [Unknown]
  - Blood creatinine increased [Unknown]
  - Spleen disorder [Unknown]
  - Blood urea increased [Unknown]
